FAERS Safety Report 5647001-3 (Version None)
Quarter: 2008Q1

REPORT INFORMATION
  Report Type: 
  Country: None (occurrence: None)
  Receive Date: 20080303
  Receipt Date: 20080222
  Transmission Date: 20080703
  Serious: Yes (Other)
  Sender: FDA-Public Use
  Company Number: B0509418A

PATIENT
  Sex: Female

DRUGS (2)
  1. COMBIVIR [Suspect]
     Dosage: 900MG PER DAY
     Dates: start: 20030113
  2. VIRAMUNE [Suspect]
     Dosage: 400MG PER DAY
     Dates: start: 20030113

REACTIONS (2)
  - ECHOCARDIOGRAM ABNORMAL [None]
  - FOETAL DISTRESS SYNDROME [None]
